FAERS Safety Report 10142813 (Version 1)
Quarter: 2014Q2

REPORT INFORMATION
  Report Type: Spontaneous
  Country: GB (occurrence: None)
  Receive Date: 20140428
  Receipt Date: 20140428
  Transmission Date: 20141212
  Serious: Yes (Other)
  Sender: FDA-Public Use
  Company Number: AUR-APL-2014-04882

PATIENT
  Age: 47 Year
  Sex: Female

DRUGS (1)
  1. NAPROXEN (NAPROXEN) [Suspect]
     Indication: PRODUCT USED FOR UNKNOWN INDICATION
     Dates: start: 20140324, end: 20140407

REACTIONS (2)
  - Chest discomfort [None]
  - Dyspnoea [None]
